FAERS Safety Report 9271882 (Version 1)
Quarter: 2013Q2

REPORT INFORMATION
  Report Type: Spontaneous
  Country: US (occurrence: US)
  Receive Date: 20130506
  Receipt Date: 20130506
  Transmission Date: 20140414
  Serious: No
  Sender: FDA-Public Use
  Company Number: US-PFIZER INC-2013138342

PATIENT
  Age: 69 Year
  Sex: Male

DRUGS (7)
  1. SUTENT [Suspect]
     Indication: MALIGNANT NEOPLASM OF RENAL PELVIS
     Dosage: 50 MG, UNK
     Dates: start: 20130410
  2. ASPIRIN [Concomitant]
     Dosage: UNK
  3. IRON [Concomitant]
     Dosage: UNK
  4. MEGACE [Concomitant]
     Dosage: UNK
     Route: 048
  5. METOCLOPRAMIDE HYDROCHLORIDE [Concomitant]
     Dosage: UNK
  6. METOPROLOL SUCCINATE [Concomitant]
     Dosage: UNK
  7. POTASSIUM BICARBONATE [Concomitant]
     Dosage: UNK

REACTIONS (1)
  - Decreased appetite [Unknown]
